FAERS Safety Report 17998375 (Version 1)
Quarter: 2020Q3

REPORT INFORMATION
  Report Type: Spontaneous
  Country: AU (occurrence: AU)
  Receive Date: 20200709
  Receipt Date: 20200709
  Transmission Date: 20201103
  Serious: Yes (Hospitalization)
  Sender: FDA-Public Use
  Company Number: AU-SA-2020SA170705

PATIENT

DRUGS (1)
  1. ENOXAPARIN SODIUM. [Suspect]
     Active Substance: ENOXAPARIN SODIUM
     Indication: INTENTIONAL SELF-INJURY
     Dosage: 2 G, TOTAL (IN HER ABDOMINAL WALL)

REACTIONS (5)
  - Intentional overdose [Unknown]
  - Activated partial thromboplastin time prolonged [Unknown]
  - Factor Xa activity decreased [Recovering/Resolving]
  - Somnolence [Unknown]
  - Injection site bruising [Unknown]
